FAERS Safety Report 5865964-8 (Version None)
Quarter: 2008Q3

REPORT INFORMATION
  Report Type: 
  Country: None (occurrence: None)
  Receive Date: 20080829
  Receipt Date: 20080822
  Transmission Date: 20090109
  Serious: Yes (Death)
  Sender: FDA-Public Use
  Company Number: ZA-GENENTECH-265596

PATIENT
  Sex: Male
  Weight: 90 kg

DRUGS (6)
  1. LUCENTIS [Suspect]
     Indication: MACULAR DEGENERATION
     Dosage: 0.5 MG, UNK
     Route: 031
     Dates: start: 20070516, end: 20071212
  2. ANTIHYPERTENSIVE DRUG NOS [Concomitant]
     Indication: DRUG USE FOR UNKNOWN INDICATION
  3. CHOLESTEROL LOWERING AGENTS [Concomitant]
     Indication: DRUG USE FOR UNKNOWN INDICATION
  4. TRIGLYCERIDE REDUCING DRUG NOS [Concomitant]
     Indication: DRUG USE FOR UNKNOWN INDICATION
  5. ANTICOAGULANT NOS [Concomitant]
     Indication: DRUG USE FOR UNKNOWN INDICATION
  6. CONCOMITANT DRUG [Concomitant]
     Indication: DRUG USE FOR UNKNOWN INDICATION
     Route: 048

REACTIONS (1)
  - CEREBROVASCULAR ACCIDENT [None]
